FAERS Safety Report 11337361 (Version 1)
Quarter: 2015Q3

REPORT INFORMATION
  Report Type: Spontaneous
  Country: US (occurrence: US)
  Receive Date: 20150803
  Receipt Date: 20150803
  Transmission Date: 20151125
  Serious: No
  Sender: FDA-Public Use
  Company Number: US-ELI_LILLY_AND_COMPANY-US200905006050

PATIENT
  Sex: Male
  Weight: 99.77 kg

DRUGS (2)
  1. ZYPREXA [Suspect]
     Active Substance: OLANZAPINE
     Indication: OBSESSIVE-COMPULSIVE DISORDER
     Dosage: 5 MG, UNK
     Dates: start: 1999
  2. INSULIN [Concomitant]
     Active Substance: INSULIN NOS
     Route: 058

REACTIONS (1)
  - Increased insulin requirement [Unknown]

NARRATIVE: CASE EVENT DATE: 1999
